FAERS Safety Report 25543988 (Version 1)
Quarter: 2025Q3

REPORT INFORMATION
  Report Type: Spontaneous
  Country: US (occurrence: US)
  Receive Date: 20250711
  Receipt Date: 20250711
  Transmission Date: 20251020
  Serious: No
  Sender: MERCK SHARP & DOHME LLC
  Company Number: US-009507513-2304872

PATIENT
  Sex: Male

DRUGS (1)
  1. KEYTRUDA [Suspect]
     Active Substance: PEMBROLIZUMAB
     Indication: Throat cancer
     Dosage: UNKNOWN/EVERY 3 WEEKS
     Route: 065

REACTIONS (4)
  - Immune system disorder [Unknown]
  - Impaired healing [Unknown]
  - Haemorrhage [Unknown]
  - Gastrointestinal tube removal [Unknown]
